FAERS Safety Report 6490045-2 (Version None)
Quarter: 2009Q4

REPORT INFORMATION
  Report Type: 
  Country: None (occurrence: None)
  Receive Date: 20091210
  Receipt Date: 20091210
  Transmission Date: 20100525
  Serious: Yes (Hospitalization)
  Sender: FDA-Public Use
  Company Number: None

PATIENT
  Age: 65 Year
  Sex: Male
  Weight: 84 kg

DRUGS (9)
  1. LEVAQUIN [Suspect]
     Indication: CELLULITIS
     Dosage: 500MG PO
     Route: 048
     Dates: start: 20091207
  2. LEVAQUIN [Suspect]
     Indication: LYMPHANGITIS
     Dosage: 500MG PO
     Route: 048
     Dates: start: 20091207
  3. AMLODIPINE-BENZAPRIL [Concomitant]
  4. CLONAZEPAM [Concomitant]
  5. FISH OIL [Concomitant]
  6. IBUPROFEN [Concomitant]
  7. MULTI-VITAMIN [Concomitant]
  8. PREVACID [Concomitant]
  9. TYLENOL (CAPLET) [Concomitant]

REACTIONS (1)
  - PARAESTHESIA [None]
